FAERS Safety Report 4835270-9 (Version None)
Quarter: 2005Q4

REPORT INFORMATION
  Report Type: 
  Country: None (occurrence: None)
  Receive Date: 20051114
  Receipt Date: 20051026
  Transmission Date: 20060501
  Serious: Yes (Hospitalization)
  Sender: FDA-Public Use
  Company Number: US_000643824

PATIENT
  Age: 30 Year
  Sex: Female

DRUGS (5)
  1. ILETIN II [Suspect]
     Indication: DIABETES MELLITUS
     Dosage: 300 U/1 DAY
  2. ILETIN I [Suspect]
     Indication: DIABETES MELLITUS
     Dosage: 210 U/1 DAY
  3. HUMULIN R [Suspect]
     Indication: DIABETES MELLITUS
     Dates: start: 19910101
  4. ATENOLOL [Concomitant]
  5. LOTENSIN [Concomitant]

REACTIONS (10)
  - ABORTION SPONTANEOUS [None]
  - CAESAREAN SECTION [None]
  - DIABETES MELLITUS INSULIN-DEPENDENT [None]
  - DRUG EXPOSURE DURING PREGNANCY [None]
  - HYPERSENSITIVITY [None]
  - HYPERTENSION [None]
  - INJECTION SITE REACTION [None]
  - PREGNANCY [None]
  - PREMATURE LABOUR [None]
  - REACTION TO PRESERVATIVES [None]
